FAERS Safety Report 6589461-X (Version None)
Quarter: 2010Q1

REPORT INFORMATION
  Report Type: 
  Country: None (occurrence: None)
  Receive Date: 20100218
  Receipt Date: 20100212
  Transmission Date: 20100710
  Serious: Yes (Life-Threatening)
  Sender: FDA-Public Use
  Company Number: FR-MERCK-0908USA01108

PATIENT
  Age: 36 Year
  Sex: Female

DRUGS (12)
  1. SINGULAIR [Suspect]
     Indication: IMMUNE RECONSTITUTION SYNDROME
     Route: 048
     Dates: start: 20090511, end: 20090516
  2. SUSTIVA [Concomitant]
     Indication: HIV INFECTION
     Route: 065
     Dates: start: 20090503, end: 20090516
  3. BACTRIM [Suspect]
     Indication: ANTIFUNGAL PROPHYLAXIS
     Route: 048
     Dates: start: 20090425, end: 20090516
  4. TRUVADA [Suspect]
     Indication: HIV INFECTION
     Route: 048
  5. FUZEON [Suspect]
     Indication: HIV INFECTION
     Route: 058
  6. IMOVANE [Suspect]
     Indication: INSOMNIA
     Route: 065
     Dates: start: 20090427, end: 20090516
  7. ZECLAR [Concomitant]
     Route: 065
     Dates: end: 20090503
  8. ANSATIPINE [Concomitant]
     Route: 065
     Dates: end: 20090503
  9. RIFADIN [Suspect]
     Indication: DISSEMINATED TUBERCULOSIS
     Route: 048
     Dates: start: 20090425
  10. MYAMBUTOL [Suspect]
     Indication: DISSEMINATED TUBERCULOSIS
     Route: 048
     Dates: start: 20090425
  11. PIRILENE [Suspect]
     Indication: DISSEMINATED TUBERCULOSIS
     Route: 048
  12. RIMIFON [Suspect]
     Indication: DISSEMINATED TUBERCULOSIS
     Route: 065
     Dates: start: 20090425

REACTIONS (1)
  - HEPATITIS FULMINANT [None]
